FAERS Safety Report 12214420 (Version 1)
Quarter: 2016Q1

REPORT INFORMATION
  Report Type: Report from Study
  Country: BR (occurrence: BR)
  Receive Date: 20160328
  Receipt Date: 20160328
  Transmission Date: 20160526
  Serious: Yes (Other)
  Sender: FDA-Public Use
  Company Number: PHHY2016BR039005

PATIENT
  Sex: Male
  Weight: 96 kg

DRUGS (1)
  1. FORASEQ [Suspect]
     Active Substance: BUDESONIDE\FORMOTEROL FUMARATE
     Indication: ASTHMA
     Dosage: 400 UG, QD
     Route: 055

REACTIONS (5)
  - Spinal cord neoplasm [Recovering/Resolving]
  - Intervertebral disc disorder [Unknown]
  - Inappropriate schedule of drug administration [Unknown]
  - Haemangioma [Unknown]
  - Product use issue [Unknown]

NARRATIVE: CASE EVENT DATE: 2011
